FAERS Safety Report 5229260-4 (Version None)
Quarter: 2007Q1

REPORT INFORMATION
  Report Type: 
  Country: None (occurrence: None)
  Receive Date: 20061201
  Receipt Date: 20060804
  Transmission Date: 20070707
  Serious: No
  Sender: FDA-Public Use
  Company Number: US200608001422

PATIENT
  Age: 79 Year
  Sex: Male

DRUGS (7)
  1. CYMBALTA [Suspect]
     Indication: DEPRESSION
     Dosage: 60 MG DAILY (1/D) UNK ; 2.30 MG UNK UNK
     Dates: start: 20060601
  2. RESTORIL [Concomitant]
  3. ATIVAN [Concomitant]
  4. CELEBREX /UNK/ (CELECOXIB) [Concomitant]
  5. SYNTHROID [Concomitant]
  6. LIPITOR [Concomitant]
  7. MULTIVITAMINS (ASCORBIC ACID, ERGOCALCIFEROL, FOLIC ACID, NICOTINAMIDE [Concomitant]

REACTIONS (3)
  - DEPRESSION [None]
  - FEELING ABNORMAL [None]
  - VISION BLURRED [None]
